FAERS Safety Report 4876767-5 (Version None)
Quarter: 2006Q1

REPORT INFORMATION
  Report Type: 
  Country: None (occurrence: None)
  Receive Date: 20060110
  Receipt Date: 20051213
  Transmission Date: 20060701
  Serious: Yes (Hospitalization, Disabling)
  Sender: FDA-Public Use
  Company Number: US-MERCK-0512USA02141

PATIENT
  Age: 52 Year
  Sex: Male
  Weight: 136 kg

DRUGS (14)
  1. VIOXX [Suspect]
     Indication: ARTHRITIS
     Route: 048
     Dates: start: 19991015, end: 20041004
  2. CEFTIN [Concomitant]
     Route: 065
  3. DOXEPIN HYDROCHLORIDE [Concomitant]
     Route: 065
  4. EMADINE [Concomitant]
     Route: 065
  5. ENALAPRIL MALEATE [Concomitant]
     Route: 065
  6. INDOMETHACIN [Concomitant]
     Route: 065
  7. PREDNISONE [Concomitant]
     Route: 065
  8. LIPITOR [Concomitant]
     Route: 065
  9. LEVAQUIN [Concomitant]
     Route: 065
  10. SULFAMETHOXAZOLE AND TRIMETHOPRIM [Concomitant]
     Route: 065
  11. TOPROL-XL [Concomitant]
     Route: 065
  12. ZYRTEC [Concomitant]
     Route: 065
  13. DENAVIR [Concomitant]
     Route: 065
  14. [THERAPY UNSPECIFIED] [Concomitant]
     Route: 065

REACTIONS (3)
  - CHEST PAIN [None]
  - CORONARY ARTERY OCCLUSION [None]
  - RECTAL CANCER [None]
